FAERS Safety Report 9540219 (Version 2)
Quarter: 2013Q4

REPORT INFORMATION
  Report Type: Spontaneous
  Country: US (occurrence: US)
  Receive Date: 20130920
  Receipt Date: 20131008
  Transmission Date: 20140711
  Serious: Yes (Death)
  Sender: FDA-Public Use
  Company Number: PHHY2013US104111

PATIENT
  Age: 80 Year
  Sex: Male

DRUGS (13)
  1. LUCENTIS [Suspect]
     Indication: AGE-RELATED MACULAR DEGENERATION
     Dosage: 0.5 MG/ML, QMO
     Dates: start: 20130709
  2. LUCENTIS [Suspect]
     Dosage: UNK UKN, UNK
     Dates: start: 20130819
  3. AVASTIN [Suspect]
     Indication: AGE-RELATED MACULAR DEGENERATION
     Dosage: UNK UKN, UNK
  4. AVASTIN [Suspect]
     Indication: OFF LABEL USE
  5. NAPROXEN [Concomitant]
     Dosage: UNK UKN, UNK
  6. AMOXICILLIN [Concomitant]
     Dosage: UNK
  7. TAMSULOSIN HYDROCHLORIDE [Concomitant]
     Dosage: UNK
  8. LISINOPRIL [Concomitant]
     Dosage: 10 MG, UNK
  9. ALENDRONATE SODIUM [Concomitant]
     Dosage: 70 MG, UNK
  10. ACTONEL [Concomitant]
     Dosage: 150 MG, UNK
  11. NORCO [Concomitant]
     Dosage: UNK UKN, UNK
  12. IBUPROFEN [Concomitant]
     Dosage: 800 MG, UNK
  13. ASPIRIN [Concomitant]
     Dosage: UNK UKN, UNK

REACTIONS (1)
  - Death [Fatal]
